FAERS Safety Report 24640768 (Version 1)
Quarter: 2024Q4

REPORT INFORMATION
  Report Type: Spontaneous
  Country: PT (occurrence: PT)
  Receive Date: 20241120
  Receipt Date: 20241120
  Transmission Date: 20250115
  Serious: Yes (Other)
  Sender: BAUSCH AND LOMB
  Company Number: PT-AMGEN-PRTSP2024220484

PATIENT
  Age: 51 Year
  Sex: Male

DRUGS (4)
  1. DEXAMETHASONE [Suspect]
     Active Substance: DEXAMETHASONE
     Indication: Plasma cell myeloma
     Dosage: 40 MILLIGRAM, QWK
     Route: 065
     Dates: start: 202012
  2. KYPROLIS [Suspect]
     Active Substance: CARFILZOMIB
     Indication: Plasma cell myeloma
     Dosage: UNK (20/56 MG/M2 (D 1, 2,8,9,15,16)
     Route: 065
     Dates: start: 202012
  3. KYPROLIS [Suspect]
     Active Substance: CARFILZOMIB
     Dosage: 70 MILLIGRAM/SQ. METER (D 1, 8, 15)
     Route: 065
  4. DARATUMUMAB [Suspect]
     Active Substance: DARATUMUMAB
     Indication: Plasma cell myeloma
     Dosage: 1800 MILLIGRAM, QWK (14/14D -} 28/28D)
     Route: 065
     Dates: start: 202012

REACTIONS (8)
  - Cataract [Unknown]
  - Pericardial effusion [Unknown]
  - COVID-19 pneumonia [Unknown]
  - Influenza like illness [Unknown]
  - Hypertension [Unknown]
  - Conjunctivitis [Unknown]
  - Ear infection [Unknown]
  - Upper respiratory tract infection [Unknown]

NARRATIVE: CASE EVENT DATE: 20210501
